FAERS Safety Report 13517130 (Version 1)
Quarter: 2017Q2

REPORT INFORMATION
  Report Type: Spontaneous
  Country: US (occurrence: US)
  Receive Date: 20170505
  Receipt Date: 20170505
  Transmission Date: 20170830
  Serious: Yes (Hospitalization)
  Sender: FDA-Public Use
  Company Number: None

PATIENT
  Age: 68 Year
  Sex: Male
  Weight: 85.9 kg

DRUGS (9)
  1. K-DUR [Concomitant]
     Active Substance: POTASSIUM CHLORIDE
  2. APAP [Concomitant]
     Active Substance: ACETAMINOPHEN
  3. FE [Concomitant]
     Active Substance: IRON
  4. XARELTO [Suspect]
     Active Substance: RIVAROXABAN
     Indication: ATRIAL FIBRILLATION
     Dosage: DATES OF USE - CHRONIC
     Route: 048
  5. VITAMIN C [Concomitant]
     Active Substance: ASCORBIC ACID
  6. BUMEX [Concomitant]
     Active Substance: BUMETANIDE
  7. LOPRESSOR [Concomitant]
     Active Substance: METOPROLOL TARTRATE
  8. PROTONIX [Concomitant]
     Active Substance: PANTOPRAZOLE SODIUM
  9. ASA [Concomitant]
     Active Substance: ASPIRIN

REACTIONS (3)
  - Anaemia [None]
  - Lower gastrointestinal haemorrhage [None]
  - Haemorrhage [None]

NARRATIVE: CASE EVENT DATE: 20170104
